FAERS Safety Report 7002619-0 (Version None)
Quarter: 2010Q3

REPORT INFORMATION
  Report Type: 
  Country: None (occurrence: None)
  Receive Date: 20100920
  Receipt Date: 20091105
  Transmission Date: 20110219
  Serious: No
  Sender: FDA-Public Use
  Company Number: US-ASTRAZENECA-2007UW10935

PATIENT
  Age: 10051 Day
  Sex: Female
  Weight: 113.4 kg

DRUGS (41)
  1. SEROQUEL [Suspect]
     Indication: BIPOLAR DISORDER
     Dosage: 25 - 400 MG/50-700 MG
     Route: 048
     Dates: start: 19980210, end: 20060615
  2. SEROQUEL [Suspect]
     Indication: DEPRESSION
     Dosage: 25 - 400 MG/50-700 MG
     Route: 048
     Dates: start: 19980210, end: 20060615
  3. SEROQUEL [Suspect]
     Indication: INSOMNIA
     Dosage: 25 - 400 MG/50-700 MG
     Route: 048
     Dates: start: 19980210, end: 20060615
  4. SEROQUEL [Suspect]
     Route: 048
     Dates: start: 20001001, end: 20060601
  5. SEROQUEL [Suspect]
     Route: 048
     Dates: start: 20001001, end: 20060601
  6. SEROQUEL [Suspect]
     Route: 048
     Dates: start: 20001001, end: 20060601
  7. SEROQUEL [Suspect]
     Route: 048
     Dates: start: 20060208
  8. SEROQUEL [Suspect]
     Route: 048
     Dates: start: 20060208
  9. SEROQUEL [Suspect]
     Route: 048
     Dates: start: 20060208
  10. SEROQUEL [Suspect]
     Dosage: 300 MG AT NIGHT AND 100 MG AT NOON
     Route: 048
     Dates: start: 20060712
  11. SEROQUEL [Suspect]
     Dosage: 300 MG AT NIGHT AND 100 MG AT NOON
     Route: 048
     Dates: start: 20060712
  12. SEROQUEL [Suspect]
     Dosage: 300 MG AT NIGHT AND 100 MG AT NOON
     Route: 048
     Dates: start: 20060712
  13. ZYPREXA [Concomitant]
     Dosage: 2.5 TO 10 MG
     Dates: start: 19980713, end: 19980701
  14. RISPERDAL [Concomitant]
     Dates: start: 20020506
  15. CLOZARIL [Concomitant]
  16. HALDOL [Concomitant]
     Dates: start: 19930101
  17. PROZAC [Concomitant]
     Indication: DEPRESSION
     Dosage: 20-30 MG AT MORNING
     Route: 048
     Dates: start: 19931022
  18. DESYREL [Concomitant]
     Dosage: 10-100 MG AT NIGHT
     Route: 048
     Dates: start: 19931022
  19. MELLARIL [Concomitant]
     Indication: HALLUCINATION, AUDITORY
     Dates: start: 19980618
  20. MELLARIL [Concomitant]
     Indication: PARANOIA
     Dates: start: 19980618
  21. TOPAMAX [Concomitant]
     Indication: AFFECT LABILITY
     Dosage: 25-100 MG AT NIGHT
     Dates: start: 20020729
  22. TOPAMAX [Concomitant]
     Indication: IMPULSIVE BEHAVIOUR
     Dosage: 25-100 MG AT NIGHT
     Dates: start: 20020729
  23. PAXIL [Concomitant]
     Indication: DEPRESSIVE SYMPTOM
     Dosage: 40-50 MG DAILY
     Route: 048
     Dates: start: 20020729
  24. REMERON [Concomitant]
     Dates: start: 20020729
  25. AMBIEN [Concomitant]
     Dates: start: 20020729
  26. LEXAPRO [Concomitant]
     Indication: DEPRESSION
     Dates: start: 20031122, end: 20031122
  27. LEXAPRO [Concomitant]
     Dosage: 10-20 MG
     Route: 048
     Dates: start: 20060123, end: 20060615
  28. LEXAPRO [Concomitant]
     Route: 048
     Dates: start: 20060210
  29. EFFEXOR XR [Concomitant]
     Dosage: 75-300 MG
     Dates: start: 20031122, end: 20040421
  30. ABILIFY [Concomitant]
     Dosage: 20-30 MG AT MORNING
     Route: 048
     Dates: start: 20031122, end: 20040421
  31. PROPRANOLOL [Concomitant]
     Route: 048
     Dates: start: 20030612
  32. WELLBUTRIN SR [Concomitant]
     Dosage: 100-300 MG
     Dates: start: 20040421
  33. DITROPAN [Concomitant]
     Indication: URINARY INCONTINENCE
     Dates: start: 20040421
  34. MEVACOR [Concomitant]
     Indication: LIPIDS INCREASED
     Dates: start: 20040421
  35. VISTARIL [Concomitant]
     Indication: ANXIETY
     Route: 048
     Dates: start: 20060123
  36. IBUPROFEN [Concomitant]
     Dates: start: 20060313
  37. COLACE [Concomitant]
     Route: 048
     Dates: start: 20060313
  38. LEVOXYL/SYNTHROID [Concomitant]
     Dosage: 100 MCG, DAILY
     Dates: start: 20060313
  39. METHYLPREDNISOLONE [Concomitant]
     Route: 048
  40. METHOCARBAMOL [Concomitant]
     Route: 048
     Dates: start: 20060530
  41. HYDROXYZINE PAMOATE [Concomitant]
     Route: 048
     Dates: start: 20060418

REACTIONS (6)
  - DIABETES MELLITUS [None]
  - DIABETES MELLITUS INADEQUATE CONTROL [None]
  - HYPERGLYCAEMIA [None]
  - OBESITY [None]
  - TYPE 1 DIABETES MELLITUS [None]
  - TYPE 2 DIABETES MELLITUS [None]
